FAERS Safety Report 10871494 (Version 1)
Quarter: 2015Q1

REPORT INFORMATION
  Report Type: Spontaneous
  Country: US (occurrence: None)
  Receive Date: 20150223
  Receipt Date: 20150223
  Transmission Date: 20150721
  Serious: Yes (Other)
  Sender: FDA-Public Use
  Company Number: None

PATIENT
  Age: 42 Year
  Sex: Female
  Weight: 56.7 kg

DRUGS (6)
  1. VITAMINS - B COMPLEX [Concomitant]
  2. CALCIUM [Concomitant]
     Active Substance: CALCIUM
  3. GLUCOSAMINE/MSM [Concomitant]
  4. ESCITALOPRAM 10MG TEVA [Suspect]
     Active Substance: ESCITALOPRAM OXALATE
     Indication: DEPRESSION
     Dosage: 1
     Route: 048
     Dates: start: 20150113, end: 20150210
  5. ESCITALOPRAM 10MG CAMBER [Suspect]
     Active Substance: ESCITALOPRAM OXALATE
     Indication: DEPRESSION
     Dosage: 1
     Route: 048
     Dates: start: 20150209, end: 20150218
  6. ESCITALOPRAM [Concomitant]
     Active Substance: ESCITALOPRAM OXALATE

REACTIONS (4)
  - Suicidal ideation [None]
  - Drug ineffective [None]
  - Product substitution issue [None]
  - Product quality issue [None]

NARRATIVE: CASE EVENT DATE: 20150217
